FAERS Safety Report 15552284 (Version 3)
Quarter: 2018Q4

REPORT INFORMATION
  Report Type: Spontaneous
  Country: BE (occurrence: BE)
  Receive Date: 20181025
  Receipt Date: 20181218
  Transmission Date: 20190205
  Serious: Yes (Other)
  Sender: FDA-Public Use
  Company Number: BE-ELI_LILLY_AND_COMPANY-BE201810011409

PATIENT
  Age: 41 Year
  Sex: Male
  Weight: 68.5 kg

DRUGS (3)
  1. VALIUM [Concomitant]
     Active Substance: DIAZEPAM
     Indication: PRODUCT USED FOR UNKNOWN INDICATION
     Dosage: 5 MG, UNKNOWN
     Route: 065
  2. ZYPREXA ZYDIS [Concomitant]
     Active Substance: OLANZAPINE
     Indication: PRODUCT USED FOR UNKNOWN INDICATION
     Dosage: 5 MG, UNKNOWN
     Route: 065
  3. ZYPADHERA [Suspect]
     Active Substance: OLANZAPINE PAMOATE
     Indication: MENTAL DISORDER
     Dosage: UNK, UNKNOWN
     Route: 030
     Dates: end: 20181023

REACTIONS (12)
  - Post-injection delirium sedation syndrome [Recovered/Resolved]
  - Extrapyramidal disorder [Recovered/Resolved]
  - Asthenia [Recovered/Resolved]
  - Confusional state [Recovered/Resolved]
  - Somnolence [Recovered/Resolved]
  - Agitation [Recovered/Resolved]
  - Dizziness [Recovered/Resolved]
  - Dysstasia [Recovered/Resolved]
  - Disorientation [Recovered/Resolved]
  - Sedation [Recovered/Resolved]
  - Depressed level of consciousness [Recovered/Resolved]
  - Body temperature increased [Recovered/Resolved]

NARRATIVE: CASE EVENT DATE: 20181023
